FAERS Safety Report 17258664 (Version 1)
Quarter: 2020Q1

REPORT INFORMATION
  Report Type: Report from Study
  Country: US (occurrence: US)
  Receive Date: 20200110
  Receipt Date: 20200110
  Transmission Date: 20200409
  Serious: Yes (Death)
  Sender: FDA-Public Use
  Company Number: US-ASTRAZENECA-2020SE03085

PATIENT
  Age: 21512 Day
  Sex: Male

DRUGS (16)
  1. PRINIVIL [Concomitant]
     Active Substance: LISINOPRIL
  2. FENOFIBRATE. [Concomitant]
     Active Substance: FENOFIBRATE
  3. PEPTO-BISMOL [Concomitant]
     Active Substance: BISMUTH SUBSALICYLATE
  4. EMERGEN-C [Concomitant]
     Active Substance: VITAMINS
  5. MAALOX ADVANCED [Concomitant]
  6. COMBIVENT RESPIMAT [Concomitant]
     Active Substance: ALBUTEROL SULFATE\IPRATROPIUM BROMIDE
  7. IBUPROFEN. [Concomitant]
     Active Substance: IBUPROFEN
  8. ALLEGRA-D [Concomitant]
     Active Substance: FEXOFENADINE\PSEUDOEPHEDRINE
  9. PROAIR HFA [Concomitant]
     Active Substance: ALBUTEROL SULFATE
  10. HYDROCODONE-ACETAMINOPHEN [Concomitant]
     Active Substance: ACETAMINOPHEN\HYDROCODONE
  11. MUCINEX [Concomitant]
     Active Substance: GUAIFENESIN
  12. LIPITOR [Concomitant]
     Active Substance: ATORVASTATIN CALCIUM
  13. IMODIUM A-D [Concomitant]
     Active Substance: LOPERAMIDE HYDROCHLORIDE
  14. MULTIVITAMINS [Concomitant]
     Active Substance: VITAMINS
  15. TAGRISSO [Suspect]
     Active Substance: OSIMERTINIB
     Indication: LUNG NEOPLASM MALIGNANT
     Route: 048
     Dates: start: 201809
  16. VITAMIN B12 [Concomitant]
     Active Substance: CYANOCOBALAMIN

REACTIONS (1)
  - Death [Fatal]

NARRATIVE: CASE EVENT DATE: 20191224
